FAERS Safety Report 9331469 (Version 2)
Quarter: 2013Q4

REPORT INFORMATION
  Report Type: Spontaneous
  Country: GB (occurrence: GB)
  Receive Date: 20130605
  Receipt Date: 20131115
  Transmission Date: 20140711
  Serious: Yes (Hospitalization)
  Sender: FDA-Public Use
  Company Number: GB-WATSON-2013-09979

PATIENT
  Age: 68 Year
  Sex: Male
  Weight: 74 kg

DRUGS (2)
  1. NAPROXEN SODIUM (UNKNOWN) [Suspect]
     Indication: JOINT SWELLING
     Dosage: 500 MG, BID
     Route: 048
     Dates: start: 20130215, end: 20130226
  2. PREGABALIN [Suspect]
     Indication: ARTHRALGIA
     Dosage: UNK
     Route: 065

REACTIONS (10)
  - Cerebral haemorrhage [Recovering/Resolving]
  - Dizziness [Unknown]
  - Muscular weakness [Unknown]
  - Balance disorder [Unknown]
  - Sensory loss [Unknown]
  - Loss of proprioception [Unknown]
  - Brain oedema [Unknown]
  - Brain compression [Unknown]
  - Romberg test positive [Unknown]
  - Hypertension [Unknown]
